FAERS Safety Report 17409552 (Version 2)
Quarter: 2020Q1

REPORT INFORMATION
  Report Type: Spontaneous
  Country: SG (occurrence: SG)
  Receive Date: 20200212
  Receipt Date: 20200217
  Transmission Date: 20200409
  Serious: Yes (Other)
  Sender: FDA-Public Use
  Company Number: SG-009507513-2002SGP001499

PATIENT
  Sex: Male

DRUGS (1)
  1. ATOZET [Suspect]
     Active Substance: ATORVASTATIN CALCIUM\EZETIMIBE
     Dosage: STRENGTH: 10/20 (UNITS NOT PROVIDED)
     Route: 048
     Dates: start: 20191227

REACTIONS (1)
  - Deafness unilateral [Unknown]
